FAERS Safety Report 6678875-5 (Version None)
Quarter: 2010Q2

REPORT INFORMATION
  Report Type: 
  Country: None (occurrence: None)
  Receive Date: 20100413
  Receipt Date: 20100406
  Transmission Date: 20101027
  Serious: No
  Sender: FDA-Public Use
  Company Number: US-ROXANE LABORATORIES, INC.-2010-RO-00384RO

PATIENT
  Sex: Female

DRUGS (8)
  1. PREDNISOLONE [Suspect]
     Indication: ALVEOLITIS ALLERGIC
     Dosage: 10 MG
     Route: 048
     Dates: start: 20100101, end: 20100405
  2. PREDNISOLONE [Suspect]
     Indication: INTERSTITIAL LUNG DISEASE
     Route: 048
     Dates: start: 20000101
  3. RANITIDINE HCL [Concomitant]
  4. XANAX [Concomitant]
  5. CLARITIN-D [Concomitant]
     Indication: MULTIPLE ALLERGIES
  6. MUCINEX [Concomitant]
     Indication: MULTIPLE ALLERGIES
  7. NASONEX [Concomitant]
     Indication: MULTIPLE ALLERGIES
  8. OXYGEN [Concomitant]
     Indication: INTERSTITIAL LUNG DISEASE
     Route: 055

REACTIONS (6)
  - ASTHENIA [None]
  - DRUG INEFFECTIVE [None]
  - DYSPNOEA [None]
  - FATIGUE [None]
  - GENERAL PHYSICAL HEALTH DETERIORATION [None]
  - TABLET ISSUE [None]
